FAERS Safety Report 22139313 (Version 1)
Quarter: 2023Q1

REPORT INFORMATION
  Report Type: Spontaneous
  Country: US (occurrence: US)
  Receive Date: 20230327
  Receipt Date: 20230327
  Transmission Date: 20230418
  Serious: No
  Sender: FDA-Public Use
  Company Number: US-drreddys-SPO/USA/23/0161735

PATIENT
  Age: 24 Year
  Sex: Female

DRUGS (2)
  1. ZENATANE [Suspect]
     Active Substance: ISOTRETINOIN
     Indication: Product used for unknown indication
     Dosage: RMA ISSUE DATE: 19 SEPTEMBER 2022 04:06:36 PM, 17 OCTOBER 2022 04:53:33 PM, 29 NOVEMBER 2022 10:17:2
  2. ZENATANE [Suspect]
     Active Substance: ISOTRETINOIN
     Dosage: RMA ISSUE DATE:  17 OCTOBER 2022 04:53:33 PM, 29 NOVEMBER 2022 10:17:26 AM AND 03 JANUARY 2023 05:37

REACTIONS (1)
  - Treatment noncompliance [Unknown]
